FAERS Safety Report 11812846 (Version 2)
Quarter: 2015Q4

REPORT INFORMATION
  Report Type: Spontaneous
  Country: HU (occurrence: HU)
  Receive Date: 20151209
  Receipt Date: 20151211
  Transmission Date: 20160305
  Serious: Yes (Other)
  Sender: FDA-Public Use
  Company Number: HU-AMGEN-HUNSP2015129917

PATIENT
  Age: 58 Year
  Sex: Female
  Weight: 74.97 kg

DRUGS (11)
  1. REXETIN [Concomitant]
     Active Substance: PAROXETINE HYDROCHLORIDE
     Indication: DEPRESSION
     Dosage: 40 MG, 1 IN THE MORNING, STARTED 3 MONTHS AGO, STOPPED 2 DAYS AGO
     Dates: start: 201508, end: 20151123
  2. CHINOTAL [Concomitant]
     Active Substance: PENTOXIFYLLINE
     Indication: VASOCONSTRICTION
     Dosage: 400 MG, 3X1, STARTED 6 YEARS AGO
     Dates: start: 2009
  3. MEDROL [Concomitant]
     Active Substance: METHYLPREDNISOLONE
     Dosage: DEPENDING ON THE PAIN DAILY 1-2, STARTED 1 WEEK AGO
     Dates: start: 201511
  4. MEDROL [Concomitant]
     Active Substance: METHYLPREDNISOLONE
     Indication: RHEUMATOID ARTHRITIS
     Dosage: DEPENDING ON THE PAIN DAILY 1-2, STARTED 3 YEARS AGO
     Dates: end: 201509
  5. MEDROL [Concomitant]
     Active Substance: METHYLPREDNISOLONE
     Dosage: DEPENDING ON THE PAIN DAILY 1-2, STARTED 1 WEEK AGO
     Dates: start: 201511
  6. STIMULOTON [Concomitant]
     Indication: DEPRESSION
     Dosage: 50 MG, 1 IN THE MORNING, STARTED 2 MONTHS AGO
     Dates: start: 201509
  7. REPSO [Concomitant]
     Indication: RHEUMATOID ARTHRITIS
     Dosage: 20 MG, 1 IN THE MORNING, STARTED 1 YEAR AGO
     Dates: start: 2014
  8. MEDROL [Concomitant]
     Active Substance: METHYLPREDNISOLONE
     Indication: RHEUMATOID ARTHRITIS
     Dosage: DEPENDING ON THE PAIN DAILY 1-2, STARTED 3 YEARS AGO
     Dates: end: 201509
  9. ENBREL [Suspect]
     Active Substance: ETANERCEPT
     Indication: RHEUMATOID ARTHRITIS
     Dosage: WEEKLY 1X1
     Route: 065
     Dates: start: 201504
  10. OLANZAPIN TEVA [Concomitant]
     Indication: DEPRESSION
     Dosage: 7.5 MG, 2X1, STARTED 2 DAYS AGO
     Dates: start: 20151123
  11. XANAX [Concomitant]
     Active Substance: ALPRAZOLAM
     Indication: DEPRESSION
     Dosage: 0.5 MG, 3X1, STARTED 2 YEARS AGO
     Dates: start: 2013

REACTIONS (4)
  - Rheumatoid arthritis [Not Recovered/Not Resolved]
  - Condition aggravated [Not Recovered/Not Resolved]
  - Mobility decreased [Not Recovered/Not Resolved]
  - Drug ineffective [Not Recovered/Not Resolved]

NARRATIVE: CASE EVENT DATE: 201510
